FAERS Safety Report 5954124-8 (Version None)
Quarter: 2008Q4

REPORT INFORMATION
  Report Type: 
  Country: None (occurrence: None)
  Receive Date: 20081113
  Receipt Date: 20081113
  Transmission Date: 20090506
  Serious: No
  Sender: FDA-Public Use
  Company Number: None

PATIENT
  Age: 90 Year
  Sex: Female
  Weight: 76.8847 kg

DRUGS (6)
  1. FOSAMAX [Suspect]
     Indication: HIP FRACTURE
     Dosage: 70MG ONCE WEEKLY PO
     Route: 048
  2. FOSAMAX [Suspect]
     Indication: OSTEOPENIA
     Dosage: 70MG ONCE WEEKLY PO
     Route: 048
  3. ALLEGRA [Concomitant]
  4. NEXIUM [Concomitant]
  5. PLAVIX [Concomitant]
  6. ZESTORETIC [Concomitant]

REACTIONS (5)
  - ASTHENIA [None]
  - HEADACHE [None]
  - NAUSEA [None]
  - SKIN BURNING SENSATION [None]
  - VOMITING [None]
